FAERS Safety Report 12011777 (Version 1)
Quarter: 2016Q1

REPORT INFORMATION
  Report Type: Report from Study
  Country: US (occurrence: US)
  Receive Date: 20160205
  Receipt Date: 20160205
  Transmission Date: 20160526
  Serious: No
  Sender: FDA-Public Use
  Company Number: US-ABBVIE-15K-163-1450962-00

PATIENT
  Age: 53 Year
  Sex: Female

DRUGS (3)
  1. HUMIRA [Suspect]
     Active Substance: ADALIMUMAB
     Indication: CROHN^S DISEASE
     Route: 058
     Dates: start: 20150710, end: 20150910
  2. PREDNISONE. [Concomitant]
     Active Substance: PREDNISONE
     Indication: PRODUCT USED FOR UNKNOWN INDICATION
  3. HUMIRA [Suspect]
     Active Substance: ADALIMUMAB
     Route: 058
     Dates: start: 20151008

REACTIONS (6)
  - Rash [Recovered/Resolved]
  - Oropharyngeal pain [Not Recovered/Not Resolved]
  - Eye irritation [Not Recovered/Not Resolved]
  - Respiratory tract congestion [Not Recovered/Not Resolved]
  - Eye swelling [Recovered/Resolved]
  - Rash pruritic [Not Recovered/Not Resolved]

NARRATIVE: CASE EVENT DATE: 2015
